FAERS Safety Report 5109933-4 (Version None)
Quarter: 2006Q3

REPORT INFORMATION
  Report Type: 
  Country: None (occurrence: None)
  Receive Date: 20060731
  Receipt Date: 20060404
  Transmission Date: 20061208
  Serious: No
  Sender: FDA-Public Use
  Company Number: 2006PV011471

PATIENT
  Age: 63 Year
  Sex: Female
  Weight: 95.2554 kg

DRUGS (5)
  1. BYETTA [Suspect]
     Indication: DIABETES MELLITUS NON-INSULIN-DEPENDENT
     Dosage: 5MC;BID;SC
     Route: 058
     Dates: start: 20060310
  2. METFORMIN HCL [Concomitant]
  3. METHOTREXATE [Concomitant]
  4. LLEFLUNOMIDE [Concomitant]
  5. PREDNISONE TAB [Concomitant]

REACTIONS (5)
  - ANOREXIA [None]
  - COLD SWEAT [None]
  - NAUSEA [None]
  - RETCHING [None]
  - VOMITING [None]
